FAERS Safety Report 4878542-4 (Version None)
Quarter: 2006Q1

REPORT INFORMATION
  Report Type: 
  Country: None (occurrence: None)
  Receive Date: 20060110
  Receipt Date: 20060110
  Transmission Date: 20060701
  Serious: Yes (Other)
  Sender: FDA-Public Use
  Company Number: None

PATIENT
  Age: 19 Year
  Sex: Female

DRUGS (3)
  1. ABILIFY [Suspect]
     Dosage: ORAL; 7.5 MILLIGRAM
     Route: 048
     Dates: start: 20041215, end: 20050606
  2. METHYLPHENIDATE HCL [Concomitant]
  3. SERTRALINE [Concomitant]

REACTIONS (3)
  - FOOD CRAVING [None]
  - INCREASED APPETITE [None]
  - LACK OF SATIETY [None]
